FAERS Safety Report 9010903 (Version 3)
Quarter: 2014Q4

REPORT INFORMATION
  Report Type: Spontaneous
  Country: GB (occurrence: GB)
  Receive Date: 20130109
  Receipt Date: 20141201
  Transmission Date: 20150529
  Serious: Yes (Life-Threatening, Hospitalization)
  Sender: FDA-Public Use
  Company Number: GB-ASTRAZENECA-2013SE00004

PATIENT
  Age: 74 Year
  Sex: Female

DRUGS (17)
  1. FUROSEMIDE. [Concomitant]
     Active Substance: FUROSEMIDE
  2. VITAMINS NOS [Concomitant]
     Active Substance: VITAMINS
  3. TAZOCIN [Suspect]
     Active Substance: PIPERACILLIN SODIUM\TAZOBACTAM SODIUM
     Indication: PERITONITIS BACTERIAL
     Route: 042
     Dates: start: 20110211, end: 20110215
  4. CIPROFLOXACIN. [Suspect]
     Active Substance: CIPROFLOXACIN
     Indication: PROPHYLAXIS
     Dates: start: 20110215, end: 20110303
  5. BENZYDAMINE [Concomitant]
     Active Substance: BENZYDAMINE
  6. LACTULOSE. [Concomitant]
     Active Substance: LACTULOSE
  7. VITAMIN K [Concomitant]
     Active Substance: PHYTONADIONE
  8. VANCOMYCIN [Concomitant]
     Active Substance: VANCOMYCIN
  9. TAZOCIN [Suspect]
     Active Substance: PIPERACILLIN SODIUM\TAZOBACTAM SODIUM
     Indication: PNEUMONIA
     Dosage: 4.5 MG THREE TIMES A DAY, GENERIC
     Route: 042
     Dates: end: 20110504
  10. CIPROFLOXACIN. [Suspect]
     Active Substance: CIPROFLOXACIN
     Indication: PERITONITIS BACTERIAL
     Dates: start: 20110215, end: 20110303
  11. ADCAL-D3 [Concomitant]
     Active Substance: CALCIUM CARBONATE\CHOLECALCIFEROL
  12. PANCREATIN [Concomitant]
     Active Substance: PANCRELIPASE
  13. SPIRONOLACTONE. [Concomitant]
     Active Substance: SPIRONOLACTONE
  14. OMEPRAZOLE. [Suspect]
     Active Substance: OMEPRAZOLE
  15. TAZOCIN [Suspect]
     Active Substance: PIPERACILLIN SODIUM\TAZOBACTAM SODIUM
     Indication: PERITONITIS BACTERIAL
     Dosage: 4.5 MG THREE TIMES A DAY, GENERIC
     Route: 042
     Dates: end: 20110504
  16. TAZOCIN [Suspect]
     Active Substance: PIPERACILLIN SODIUM\TAZOBACTAM SODIUM
     Indication: PNEUMONIA
     Route: 042
     Dates: start: 20110211, end: 20110215
  17. FOLIC ACID. [Concomitant]
     Active Substance: FOLIC ACID

REACTIONS (3)
  - Clostridium difficile colitis [Recovered/Resolved]
  - Intestinal dilatation [Unknown]
  - Diarrhoea [Recovered/Resolved]

NARRATIVE: CASE EVENT DATE: 20110312
